FAERS Safety Report 6820437-0 (Version None)
Quarter: 2010Q3

REPORT INFORMATION
  Report Type: 
  Country: None (occurrence: None)
  Receive Date: 20100707
  Receipt Date: 20100625
  Transmission Date: 20110219
  Serious: Yes (Death)
  Sender: FDA-Public Use
  Company Number: US-PFIZER INC-2010079652

PATIENT
  Age: 38 Year
  Sex: Male

DRUGS (4)
  1. ALPRAZOLAM [Suspect]
  2. OXYCODONE [Interacting]
  3. TRAMADOL HYDROCHLORIDE [Interacting]
  4. CARISOPRODOL [Interacting]

REACTIONS (2)
  - DRUG INTERACTION [None]
  - DRUG TOXICITY [None]
